FAERS Safety Report 18900799 (Version 2)
Quarter: 2021Q2

REPORT INFORMATION
  Report Type: Other
  Country: IT (occurrence: IT)
  Receive Date: 20210217
  Receipt Date: 20210610
  Transmission Date: 20210717
  Serious: Yes (Hospitalization)
  Sender: FDA-Public Use
  Company Number: IT-CELLTRION INC.-2019IT021445

PATIENT

DRUGS (4)
  1. ATEZOLIZUMAB. [Suspect]
     Active Substance: ATEZOLIZUMAB
     Indication: BREAST CANCER
     Dosage: 1200 MG, EVERY 3 WEEKS (LAST DOSE PRIOR TO SAE: 29/APR/2019)
     Route: 042
     Dates: start: 20190428, end: 20190429
  2. PERTUZUMAB. [Suspect]
     Active Substance: PERTUZUMAB
     Dosage: 420 MG PER 3 WEEK (DOSAGE TEXT: DATE OF MOST RECENT DOSE : 29/APR/2019 )
     Route: 042
  3. PERTUZUMAB. [Suspect]
     Active Substance: PERTUZUMAB
     Indication: BREAST CANCER
     Dosage: 840 MG PER 3 WEEK (DOSAGE TEXT: DATE OF MOST RECENT DOSE : 29/APR/2019 )
     Route: 042
     Dates: start: 20190429, end: 20190429
  4. TRASTUZUMAB (UNKNOWN) [Suspect]
     Active Substance: TRASTUZUMAB
     Indication: BREAST CANCER
     Dosage: 1 EVERY 3 WEEKS (DOSAGE TEXT:LAST DOSE OF TRASTUZUMAB PRIOE TO SAE: 29/APR/2019) (100MG))
     Route: 042
     Dates: start: 20190429, end: 20190429

REACTIONS (2)
  - Infusion related reaction [Recovered/Resolved]
  - Underdose [Unknown]

NARRATIVE: CASE EVENT DATE: 20190429
